FAERS Safety Report 12701293 (Version 1)
Quarter: 2016Q3

REPORT INFORMATION
  Report Type: Spontaneous
  Country: US (occurrence: None)
  Receive Date: 20160830
  Receipt Date: 20160830
  Transmission Date: 20161109
  Serious: No
  Sender: FDA-Public Use
  Company Number: None

PATIENT
  Age: 80 Year
  Sex: Female
  Weight: 90.72 kg

DRUGS (7)
  1. AMLODIPINE BESYLATE. [Concomitant]
     Active Substance: AMLODIPINE BESYLATE
  2. METABOLISM SUPPORT B62 [Concomitant]
  3. ASPIRIN. [Concomitant]
     Active Substance: ASPIRIN
  4. EDECRIN [Suspect]
     Active Substance: ETHACRYNIC ACID
     Indication: OEDEMA
     Dosage: 4 BILLS TO START 1 PER DAY MOUTH
     Route: 048
     Dates: start: 20160801, end: 20160808
  5. ATORVASTATIN [Concomitant]
     Active Substance: ATORVASTATIN
  6. CRANBERRY. [Concomitant]
     Active Substance: CRANBERRY
  7. LORATADINE. [Concomitant]
     Active Substance: LORATADINE

REACTIONS (5)
  - Nausea [None]
  - Decreased appetite [None]
  - Asthenia [None]
  - Fatigue [None]
  - Dizziness [None]
